FAERS Safety Report 4283749-3 (Version None)
Quarter: 2004Q1

REPORT INFORMATION
  Report Type: 
  Country: None (occurrence: None)
  Receive Date: 20040129
  Receipt Date: 20040129
  Transmission Date: 20041129
  Serious: Yes (Death)
  Sender: FDA-Public Use
  Company Number: None

PATIENT
  Age: 89 Year
  Sex: Male

DRUGS (13)
  1. GEODON [Suspect]
     Indication: PSYCHOTIC DISORDER
     Dosage: 20 MG/ML DAILY INTRAVENOUS
     Route: 042
     Dates: start: 20030323, end: 20030326
  2. METOPROLOL [Concomitant]
  3. LOSARTAN [Concomitant]
  4. ASPIRIN [Concomitant]
  5. MULTIPLE VITAMIN [Concomitant]
  6. CALCIUM CARBONATE [Concomitant]
  7. ASCORBIC ACID [Concomitant]
  8. NITROGLYCERIN [Concomitant]
  9. FAMOTIDINE [Concomitant]
  10. DARVOCET [Concomitant]
  11. LOVENOX [Concomitant]
  12. CLINDAMYCIN [Concomitant]
  13. PENTOBARBITAL CAP [Concomitant]

REACTIONS (2)
  - CARDIO-RESPIRATORY ARREST [None]
  - COMA [None]
